FAERS Safety Report 11106323 (Version 1)
Quarter: 2015Q2

REPORT INFORMATION
  Report Type: Spontaneous
  Country: GB (occurrence: GB)
  Receive Date: 20150512
  Receipt Date: 20150512
  Transmission Date: 20150821
  Serious: Yes (Other)
  Sender: FDA-Public Use
  Company Number: GB-TEVA-561388ACC

PATIENT
  Age: 35 Year
  Sex: Male
  Weight: 105 kg

DRUGS (4)
  1. VENTOLIN [Concomitant]
     Active Substance: ALBUTEROL SULFATE
     Indication: ASTHMA
     Dosage: 400 MICROGRAM DAILY; ONGOING; DAILY DOSE 400 MICROGRAM
     Route: 055
  2. CLENIL MODULITE [Concomitant]
     Active Substance: BECLOMETHASONE DIPROPIONATE
     Indication: ASTHMA
     Dosage: 800 MICROGRAM DAILY; ONGOING; DAILY DOSE 800 MICROGRAM
     Route: 055
  3. NAPROXEN. [Suspect]
     Active Substance: NAPROXEN
     Indication: PAIN IN EXTREMITY
     Dosage: 1000 MILLIGRAM DAILY;
     Route: 048
     Dates: start: 20150416, end: 20150419
  4. LEMSIP COLD AND FLU [Concomitant]
     Indication: UPPER RESPIRATORY TRACT INFECTION
     Route: 048
     Dates: start: 201502, end: 201502

REACTIONS (4)
  - Skin infection [Recovering/Resolving]
  - Cellulitis [Recovering/Resolving]
  - Wound secretion [Recovering/Resolving]
  - Impaired work ability [Unknown]

NARRATIVE: CASE EVENT DATE: 20150419
